FAERS Safety Report 23292335 (Version 1)
Quarter: 2023Q4

REPORT INFORMATION
  Report Type: Spontaneous
  Country: US (occurrence: None)
  Receive Date: 20231212
  Receipt Date: 20231212
  Transmission Date: 20240109
  Serious: Yes (Other)
  Sender: FDA-Public Use
  Company Number: None

PATIENT
  Age: 22 Year
  Sex: Female

DRUGS (1)
  1. LAMOTRIGINE [Suspect]
     Active Substance: LAMOTRIGINE
     Dosage: FREQUENCY : DAILY;?
     Route: 048
     Dates: start: 20231011, end: 20231118

REACTIONS (4)
  - Rash [None]
  - Rash [None]
  - Oral mucosal blistering [None]
  - Dysphagia [None]

NARRATIVE: CASE EVENT DATE: 20231117
